FAERS Safety Report 9144285 (Version 1)
Quarter: 2013Q1

REPORT INFORMATION
  Report Type: Spontaneous
  Country: SE (occurrence: SE)
  Receive Date: 20130306
  Receipt Date: 20130306
  Transmission Date: 20140127
  Serious: Yes (Hospitalization)
  Sender: FDA-Public Use
  Company Number: SE-ROCHE-1197611

PATIENT
  Age: 67 Year
  Sex: Female

DRUGS (3)
  1. LUCENTIS [Suspect]
     Indication: AGE-RELATED MACULAR DEGENERATION
     Route: 050
     Dates: start: 20110526
  2. LUCENTIS [Suspect]
     Route: 050
     Dates: start: 20111020
  3. LUCENTIS [Suspect]
     Route: 050
     Dates: start: 20121122

REACTIONS (1)
  - Transient ischaemic attack [Recovered/Resolved]
